FAERS Safety Report 13499649 (Version 4)
Quarter: 2017Q4

REPORT INFORMATION
  Report Type: Report from Study
  Country: CA (occurrence: CA)
  Receive Date: 20170501
  Receipt Date: 20171109
  Transmission Date: 20180320
  Serious: Yes (Hospitalization, Other)
  Sender: FDA-Public Use
  Company Number: CA-CELGENEUS-CAN-20170407158

PATIENT
  Age: 69 Year
  Sex: Male
  Weight: 91 kg

DRUGS (91)
  1. LYRICA [Concomitant]
     Active Substance: PREGABALIN
     Dosage: 75 MILLIGRAM
     Route: 048
     Dates: start: 20170420, end: 20170420
  2. LYRICA [Concomitant]
     Active Substance: PREGABALIN
     Dosage: 75 MILLIGRAM
     Route: 048
     Dates: start: 20170421, end: 20170505
  3. LYRICA [Concomitant]
     Active Substance: PREGABALIN
     Dosage: 75 MILLIGRAM
     Route: 048
     Dates: start: 20170419, end: 20170421
  4. FAMVIR [Concomitant]
     Active Substance: FAMCICLOVIR
     Indication: ANTIVIRAL PROPHYLAXIS
     Dosage: 500 MILLIGRAM
     Route: 048
     Dates: start: 20140910
  5. PANTOLOC [Concomitant]
     Active Substance: PANTOPRAZOLE SODIUM
     Dosage: 40 MILLIGRAM
     Route: 048
     Dates: start: 20170421, end: 20170423
  6. M-ESLON [Concomitant]
     Active Substance: MORPHINE SULFATE
     Indication: PAIN MANAGEMENT
     Dosage: 10 MILLIGRAM
     Route: 065
     Dates: start: 20140910
  7. ALLOPURINOL. [Concomitant]
     Active Substance: ALLOPURINOL
     Indication: PRODUCT USED FOR UNKNOWN INDICATION
     Dosage: 100 MILLIGRAM
     Route: 048
     Dates: start: 20170420, end: 20170420
  8. DALTEPARIN [Concomitant]
     Active Substance: DALTEPARIN
     Indication: PRODUCT USED FOR UNKNOWN INDICATION
     Dosage: 5000 IU (INTERNATIONAL UNIT)
     Route: 058
     Dates: start: 20170421, end: 20170421
  9. SALMETEROL/FLUTICASONE [Concomitant]
     Active Substance: FLUTICASONE PROPIONATE\SALMETEROL XINAFOATE
     Dosage: 50-250MCG (1 PUFF)
     Route: 048
     Dates: start: 20170421, end: 20170505
  10. POTASSIUM CHLORIDE. [Concomitant]
     Active Substance: POTASSIUM CHLORIDE
     Indication: PRODUCT USED FOR UNKNOWN INDICATION
     Dosage: 40 MILLIMOLE
     Route: 048
     Dates: start: 20170419, end: 20170421
  11. POTASSIUM CHLORIDE. [Concomitant]
     Active Substance: POTASSIUM CHLORIDE
     Dosage: 20 MILLIMOLE
     Route: 048
     Dates: start: 20170505, end: 20170505
  12. POTASSIUM CHLORIDE. [Concomitant]
     Active Substance: POTASSIUM CHLORIDE
     Dosage: 20 MILLIMOLE
     Route: 048
     Dates: start: 20170503, end: 20170505
  13. SODIUM PHOSPHATE [Concomitant]
     Active Substance: SODIUM PHOSPHATE
     Dosage: 15 MILLIMOLE
     Route: 041
     Dates: start: 20170503, end: 20170505
  14. SODIUM PHOSPHATE [Concomitant]
     Active Substance: SODIUM PHOSPHATE
     Dosage: 30 MILLIMOLE
     Route: 041
     Dates: start: 20170421, end: 20170503
  15. ONDANSETRON [Concomitant]
     Active Substance: ONDANSETRON
     Indication: PRODUCT USED FOR UNKNOWN INDICATION
     Dosage: 16 MILLIGRAM
     Route: 048
     Dates: start: 20170425, end: 20170425
  16. MELPHALAN. [Suspect]
     Active Substance: MELPHALAN
     Indication: PLASMA CELL MYELOMA
     Dosage: 310 MILLIGRAM
     Route: 041
     Dates: start: 20140628
  17. ATIVAN [Concomitant]
     Active Substance: LORAZEPAM
     Dosage: 1 MILLIGRAM
     Route: 048
     Dates: start: 20170425, end: 20170505
  18. PANTOLOC [Concomitant]
     Active Substance: PANTOPRAZOLE SODIUM
     Dosage: 40 MILLIGRAM
     Route: 048
     Dates: start: 20170420, end: 20170420
  19. PANTOLOC [Concomitant]
     Active Substance: PANTOPRAZOLE SODIUM
     Dosage: 40 MILLIGRAM
     Route: 048
     Dates: start: 20170419, end: 20170421
  20. ASA [Concomitant]
     Active Substance: ASPIRIN
     Dosage: 80 MILLIGRAM
     Route: 048
     Dates: start: 20170419, end: 20170421
  21. EURO K20 [Concomitant]
     Indication: HYPOKALAEMIA
     Dosage: 3000 MILLIGRAM
     Route: 048
     Dates: start: 20150319
  22. MAGNESIUM [Concomitant]
     Active Substance: MAGNESIUM
     Indication: HYPOMAGNESAEMIA
     Dosage: 500 MILLIGRAM
     Route: 065
     Dates: start: 20150819
  23. MAGNESIUM [Concomitant]
     Active Substance: MAGNESIUM
     Dosage: 5 GRAM
     Route: 041
     Dates: start: 20170421, end: 20170503
  24. ROSUVASTATIN. [Concomitant]
     Active Substance: ROSUVASTATIN
     Dosage: 10 MILLIGRAM
     Route: 048
     Dates: start: 20170421, end: 20170505
  25. SODIUM CHLORIDE. [Concomitant]
     Active Substance: SODIUM CHLORIDE
     Indication: PRODUCT USED FOR UNKNOWN INDICATION
     Dosage: 2400 MILLILITER
     Route: 041
     Dates: start: 20170421, end: 20170505
  26. ALLOPURINOL. [Concomitant]
     Active Substance: ALLOPURINOL
     Dosage: 600 MILLIGRAM
     Route: 048
     Dates: start: 20170421, end: 20170501
  27. ACETAMINOPHEN. [Concomitant]
     Active Substance: ACETAMINOPHEN
     Dosage: 3900 MILLIGRAM
     Route: 048
     Dates: start: 20170426, end: 20170426
  28. CITALOPRAM [Concomitant]
     Active Substance: CITALOPRAM HYDROBROMIDE
     Dosage: 20 MILLIGRAM
     Route: 048
     Dates: start: 20170421, end: 20170505
  29. MORPHINE [Concomitant]
     Active Substance: MORPHINE
     Dosage: 30 MILLIGRAM
     Route: 041
     Dates: start: 20170419, end: 20170421
  30. POTASSIUM CHLORIDE. [Concomitant]
     Active Substance: POTASSIUM CHLORIDE
     Dosage: 20 MILLIMOLE
     Route: 048
     Dates: start: 20170420, end: 20170420
  31. SENNOSIDES. [Concomitant]
     Active Substance: SENNOSIDES
     Indication: PRODUCT USED FOR UNKNOWN INDICATION
     Dosage: 17.2 MILLIGRAM
     Route: 048
     Dates: start: 20170429, end: 20170505
  32. DIMENHYDRINATE. [Concomitant]
     Active Substance: DIMENHYDRINATE
     Dosage: 100 MILLIGRAM
     Route: 048
     Dates: start: 20170421, end: 20170505
  33. HYDROCHLOROTHIAZIDE. [Concomitant]
     Active Substance: HYDROCHLOROTHIAZIDE
     Indication: PRODUCT USED FOR UNKNOWN INDICATION
     Dosage: 12.5 MILLIGRAM
     Route: 048
     Dates: start: 20170419, end: 20170419
  34. LYRICA [Concomitant]
     Active Substance: PREGABALIN
     Indication: NEURALGIA
     Dosage: 150 MILLIGRAM
     Route: 048
     Dates: start: 2013
  35. DOCUSATE [Concomitant]
     Active Substance: DOCUSATE
     Dosage: 1
     Route: 048
     Dates: start: 20170429, end: 20170505
  36. SALMETEROL/FLUTICASONE [Concomitant]
     Active Substance: FLUTICASONE PROPIONATE\SALMETEROL XINAFOATE
     Indication: PRODUCT USED FOR UNKNOWN INDICATION
     Dosage: 50-250MCG (1 PUFF)
     Route: 048
     Dates: start: 20170419, end: 20170421
  37. POTASSIUM CHLORIDE. [Concomitant]
     Active Substance: POTASSIUM CHLORIDE
     Dosage: 20 MILLIMOLE
     Route: 041
     Dates: start: 20170502, end: 20170502
  38. POTASSIUM CHLORIDE. [Concomitant]
     Active Substance: POTASSIUM CHLORIDE
     Dosage: 20 MILLIMOLE
     Route: 041
     Dates: start: 20170421, end: 20170503
  39. PHOSPHORUS [Concomitant]
     Active Substance: PHOSPHORUS
     Indication: PRODUCT USED FOR UNKNOWN INDICATION
     Dosage: 500 MILLIGRAM
     Route: 048
     Dates: start: 20170503, end: 20170505
  40. METOCLOPRAMIDE. [Concomitant]
     Active Substance: METOCLOPRAMIDE
     Indication: PRODUCT USED FOR UNKNOWN INDICATION
     Dosage: 60 MILLIGRAM
     Route: 041
     Dates: start: 20170425, end: 20170505
  41. METOCLOPRAMIDE. [Concomitant]
     Active Substance: METOCLOPRAMIDE
     Dosage: 40 MILLIGRAM
     Route: 041
     Dates: start: 20170419, end: 20170419
  42. DIMENHYDRINATE. [Concomitant]
     Active Substance: DIMENHYDRINATE
     Indication: PRODUCT USED FOR UNKNOWN INDICATION
     Dosage: 100 MILLIGRAM
     Route: 041
     Dates: start: 20170421, end: 20170505
  43. VALACYCLOVIR [Concomitant]
     Active Substance: VALACYCLOVIR HYDROCHLORIDE
     Indication: PRODUCT USED FOR UNKNOWN INDICATION
     Dosage: 500 MILLIGRAM
     Route: 048
     Dates: start: 20170419, end: 20170421
  44. DOCUSATE [Concomitant]
     Active Substance: DOCUSATE
     Dosage: 1
     Route: 048
     Dates: start: 20170419, end: 20170421
  45. ATIVAN [Concomitant]
     Active Substance: LORAZEPAM
     Indication: INSOMNIA
     Dosage: 1 MILLIGRAM
     Route: 048
     Dates: start: 20140131
  46. PANTOLOC [Concomitant]
     Active Substance: PANTOPRAZOLE SODIUM
     Dosage: 80 MILLIGRAM
     Route: 048
     Dates: start: 20160423, end: 20170505
  47. ASA [Concomitant]
     Active Substance: ASPIRIN
     Indication: PROPHYLAXIS
     Dosage: 81 MILLIGRAM
     Route: 065
     Dates: start: 20130626
  48. ACETAMINOPHEN. [Concomitant]
     Active Substance: ACETAMINOPHEN
     Indication: PRODUCT USED FOR UNKNOWN INDICATION
     Dosage: 2600 MILLIGRAM
     Route: 048
     Dates: start: 20170421, end: 20170505
  49. MORPHINE [Concomitant]
     Active Substance: MORPHINE
     Dosage: 30 MILLIGRAM
     Route: 048
     Dates: start: 20170426, end: 20170505
  50. POTASSIUM CHLORIDE. [Concomitant]
     Active Substance: POTASSIUM CHLORIDE
     Dosage: 10 MILLIMOLE
     Route: 041
     Dates: start: 20170503, end: 20170505
  51. SODIUM PHOSPHATE [Concomitant]
     Active Substance: SODIUM PHOSPHATE
     Indication: PRODUCT USED FOR UNKNOWN INDICATION
     Dosage: 30 MILLIMOLE
     Route: 041
     Dates: start: 20170503, end: 20170505
  52. FLUCONAZOLE. [Concomitant]
     Active Substance: FLUCONAZOLE
     Route: 065
     Dates: start: 20170504, end: 20170510
  53. DOCUSATE [Concomitant]
     Active Substance: DOCUSATE
     Indication: CONSTIPATION PROPHYLAXIS
     Dosage: 100 MILLIGRAM
     Route: 048
     Dates: start: 2010
  54. ASA [Concomitant]
     Active Substance: ASPIRIN
     Dosage: 80 MILLIGRAM
     Route: 048
     Dates: start: 20170421, end: 20170505
  55. ROSUVASTATIN. [Concomitant]
     Active Substance: ROSUVASTATIN
     Indication: HYPERCHOLESTEROLAEMIA
     Dosage: 10 MILLIGRAM
     Route: 065
     Dates: start: 2003
  56. ROSUVASTATIN. [Concomitant]
     Active Substance: ROSUVASTATIN
     Dosage: 10 MILLIGRAM
     Route: 048
     Dates: start: 20170419, end: 20170421
  57. DALTEPARIN [Concomitant]
     Active Substance: DALTEPARIN
     Dosage: 5000 IU (INTERNATIONAL UNIT)
     Route: 058
     Dates: start: 20170421, end: 20170505
  58. SALBUTAMOL [Concomitant]
     Active Substance: ALBUTEROL
     Indication: PRODUCT USED FOR UNKNOWN INDICATION
     Dosage: 400 MICROGRAM
     Route: 065
  59. SALBUTAMOL [Concomitant]
     Active Substance: ALBUTEROL
     Dosage: 800 MICROGRAM
     Route: 048
     Dates: start: 20170421, end: 20170505
  60. DILAUDID [Concomitant]
     Active Substance: HYDROMORPHONE HYDROCHLORIDE
     Indication: PRODUCT USED FOR UNKNOWN INDICATION
     Dosage: 8 MILLIGRAM
     Route: 058
     Dates: start: 20170421, end: 20170426
  61. MORPHINE [Concomitant]
     Active Substance: MORPHINE
     Dosage: 15 MILLIGRAM
     Route: 058
     Dates: start: 20170426, end: 20170505
  62. MORPHINE [Concomitant]
     Active Substance: MORPHINE
     Dosage: 20 MILLIGRAM
     Route: 048
     Dates: start: 20170421, end: 20170503
  63. POTASSIUM CHLORIDE. [Concomitant]
     Active Substance: POTASSIUM CHLORIDE
     Dosage: 20 MILLIMOLE
     Route: 065
     Dates: start: 20170421, end: 20170503
  64. MAGNESIUM SULFATE. [Concomitant]
     Active Substance: MAGNESIUM SULFATE
     Indication: PRODUCT USED FOR UNKNOWN INDICATION
     Dosage: 5 GRAM
     Route: 048
     Dates: start: 20170503, end: 20170505
  65. METOCLOPRAMIDE. [Concomitant]
     Active Substance: METOCLOPRAMIDE
     Dosage: 60 MILLIGRAM
     Route: 048
     Dates: start: 20170425, end: 20170505
  66. REVLIMID [Suspect]
     Active Substance: LENALIDOMIDE
     Route: 048
     Dates: end: 201605
  67. BUSULFAN. [Suspect]
     Active Substance: BUSULFAN
     Indication: PLASMA CELL MYELOMA
     Dosage: 280 MILLIGRAM
     Route: 041
     Dates: start: 20140625, end: 20140627
  68. PANTOLOC [Concomitant]
     Active Substance: PANTOPRAZOLE SODIUM
     Indication: GASTROOESOPHAGEAL REFLUX DISEASE
     Dosage: 40 MILLIGRAM
     Route: 065
     Dates: start: 20160413
  69. GRAVOL [Concomitant]
     Active Substance: DIMENHYDRINATE
     Indication: PRODUCT USED FOR UNKNOWN INDICATION
     Dosage: 100 MILLIGRAM
     Route: 048
  70. DILAUDID [Concomitant]
     Active Substance: HYDROMORPHONE HYDROCHLORIDE
     Dosage: .5 MILLIGRAM
     Route: 058
     Dates: start: 20170421, end: 20170426
  71. MORPHINE [Concomitant]
     Active Substance: MORPHINE
     Indication: PRODUCT USED FOR UNKNOWN INDICATION
     Dosage: 20 MILLIGRAM
     Route: 048
     Dates: start: 20170419, end: 20170421
  72. POTASSIUM CHLORIDE. [Concomitant]
     Active Substance: POTASSIUM CHLORIDE
     Dosage: 20 MILLIMOLE
     Route: 065
     Dates: start: 20170503, end: 20170505
  73. POTASSIUM CHLORIDE. [Concomitant]
     Active Substance: POTASSIUM CHLORIDE
     Dosage: 10 MILLIMOLE
     Route: 041
     Dates: start: 20170421, end: 20170503
  74. POTASSIUM CHLORIDE. [Concomitant]
     Active Substance: POTASSIUM CHLORIDE
     Dosage: 20 MILLIMOLE
     Route: 048
     Dates: start: 20170421, end: 20170503
  75. INSULIN HUMULIN R [Concomitant]
     Indication: PRODUCT USED FOR UNKNOWN INDICATION
     Dosage: 100 UNITS/ML (3ML)
     Route: 058
     Dates: start: 20170421, end: 20170503
  76. FLUCONAZOLE. [Concomitant]
     Active Substance: FLUCONAZOLE
     Indication: CANDIDA INFECTION
     Dosage: 400 MILLIGRAM
     Route: 048
     Dates: start: 20170504, end: 20170510
  77. FAMVIR [Concomitant]
     Active Substance: FAMCICLOVIR
     Dosage: 250 MILLIGRAM
     Route: 048
     Dates: start: 20170421, end: 20170505
  78. ATIVAN [Concomitant]
     Active Substance: LORAZEPAM
     Dosage: 1 MILLIGRAM
     Route: 048
     Dates: start: 20170419, end: 20170421
  79. MORPHINE [Concomitant]
     Active Substance: MORPHINE
     Dosage: 10MG/ML (1ML)
     Route: 058
     Dates: start: 20170419, end: 20170419
  80. POTASSIUM CHLORIDE. [Concomitant]
     Active Substance: POTASSIUM CHLORIDE
     Dosage: 20 MILLIMOLE
     Route: 041
     Dates: start: 20170503, end: 20170505
  81. FILGRASTIM [Concomitant]
     Active Substance: FILGRASTIM
     Indication: PRODUCT USED FOR UNKNOWN INDICATION
     Dosage: 480 MICROGRAM
     Route: 058
     Dates: start: 20170427, end: 20170505
  82. MAGNESIUM GLOCOHEP [Concomitant]
     Indication: PRODUCT USED FOR UNKNOWN INDICATION
     Dosage: 75 MILLIGRAM
     Route: 048
     Dates: start: 20170421, end: 20170503
  83. DICYCLOMINE [Concomitant]
     Active Substance: DICYCLOMINE HYDROCHLORIDE
     Indication: PRODUCT USED FOR UNKNOWN INDICATION
     Dosage: 10 MILLIGRAM
     Route: 065
     Dates: start: 20170419, end: 20170419
  84. REVLIMID [Suspect]
     Active Substance: LENALIDOMIDE
     Indication: PLASMA CELL MYELOMA
     Dosage: 10 MILLIGRAM
     Route: 048
     Dates: start: 20141010, end: 20150415
  85. ATIVAN [Concomitant]
     Active Substance: LORAZEPAM
     Dosage: 1 MILLIGRAM
     Route: 048
     Dates: start: 20170421, end: 20170425
  86. ASA [Concomitant]
     Active Substance: ASPIRIN
     Dosage: 80 MILLIGRAM
     Route: 048
     Dates: start: 20170420, end: 20170420
  87. ALLOPURINOL. [Concomitant]
     Active Substance: ALLOPURINOL
     Dosage: 600 MILLIGRAM
     Route: 048
     Dates: start: 20170419, end: 20170421
  88. CITALOPRAM [Concomitant]
     Active Substance: CITALOPRAM HYDROBROMIDE
     Indication: PRODUCT USED FOR UNKNOWN INDICATION
     Dosage: 20 MILLIGRAM
     Route: 048
     Dates: start: 20170419, end: 20170421
  89. POLYETHYLENE GLYCOL [Concomitant]
     Active Substance: POLYETHYLENE GLYCOLS
     Indication: PRODUCT USED FOR UNKNOWN INDICATION
     Dosage: 17 GRAM
     Route: 048
  90. DIPHENHYDRAMINE. [Concomitant]
     Active Substance: DIPHENHYDRAMINE
     Indication: PRODUCT USED FOR UNKNOWN INDICATION
     Dosage: 50 MILLIGRAM
     Route: 041
     Dates: start: 20170426, end: 20170426
  91. OXYCODONE [Concomitant]
     Active Substance: OXYCODONE
     Indication: PRODUCT USED FOR UNKNOWN INDICATION
     Dosage: 5 MILLIGRAM
     Route: 048
     Dates: start: 20170419, end: 20170419

REACTIONS (1)
  - Diffuse large B-cell lymphoma [Recovered/Resolved]

NARRATIVE: CASE EVENT DATE: 20170419
